FAERS Safety Report 14358359 (Version 2)
Quarter: 2018Q2

REPORT INFORMATION
  Report Type: Spontaneous
  Country: US (occurrence: US)
  Receive Date: 20180105
  Receipt Date: 20180404
  Transmission Date: 20180711
  Serious: No
  Sender: FDA-Public Use
  Company Number: US-SA-2017SA205993

PATIENT
  Age: 62 Year
  Sex: Female
  Weight: 65.77 kg

DRUGS (2)
  1. DUPIXENT [Suspect]
     Active Substance: DUPILUMAB
     Indication: DERMATITIS ATOPIC
     Route: 058
     Dates: start: 201708
  2. TRIAMCINOLONE [Suspect]
     Active Substance: TRIAMCINOLONE
     Indication: DERMATITIS ATOPIC
     Route: 065

REACTIONS (6)
  - Dermatitis [Recovering/Resolving]
  - Drug effect decreased [Unknown]
  - Weight increased [Unknown]
  - Conjunctivitis [Unknown]
  - Condition aggravated [Unknown]
  - Pruritus [Unknown]

NARRATIVE: CASE EVENT DATE: 2017
